FAERS Safety Report 7170685-8 (Version None)
Quarter: 2010Q4

REPORT INFORMATION
  Report Type: 
  Country: None (occurrence: None)
  Receive Date: 20101206
  Receipt Date: 20101123
  Transmission Date: 20110411
  Serious: Yes (Hospitalization)
  Sender: FDA-Public Use
  Company Number: 2010SP001732

PATIENT
  Age: 72 Year
  Sex: Male
  Weight: 98.7 kg

DRUGS (12)
  1. ARFORMOTEROL TARTRATE [Suspect]
     Indication: CHRONIC OBSTRUCTIVE PULMONARY DISEASE
     Dosage: 15 UG;BID;INHALATION
     Route: 055
     Dates: start: 20100429, end: 20100601
  2. EFFEXOR /01233802/ [Concomitant]
  3. FEXOFENADINE HCL [Concomitant]
  4. ACETYLSALICYLIC ACID SRT [Concomitant]
  5. HYDROCHLOROTHIAZIDE [Concomitant]
  6. VYTORIN [Concomitant]
  7. PLAVIX [Concomitant]
  8. LIPITOR [Concomitant]
  9. AMLODIPINE [Concomitant]
  10. BENAZEPRIL [Concomitant]
  11. KLOR-CON [Concomitant]
  12. COMBIVENT [Concomitant]

REACTIONS (5)
  - ARTERIOSCLEROSIS CORONARY ARTERY [None]
  - CORONARY ARTERY OCCLUSION [None]
  - CORONARY ARTERY STENOSIS [None]
  - LEFT VENTRICULAR DYSFUNCTION [None]
  - MYOCARDIAL ISCHAEMIA [None]
